FAERS Safety Report 5768196-7 (Version None)
Quarter: 2008Q2

REPORT INFORMATION
  Report Type: 
  Country: None (occurrence: None)
  Receive Date: 20080612
  Receipt Date: 20080603
  Transmission Date: 20081010
  Serious: Yes (Hospitalization)
  Sender: FDA-Public Use
  Company Number: US-MERCK-0806USA00571

PATIENT
  Age: 55 Year
  Sex: Female

DRUGS (8)
  1. FOSAMAX PLUS D [Suspect]
     Indication: OSTEOPOROSIS
     Route: 048
     Dates: start: 20040101, end: 20080601
  2. METOPROLOL [Concomitant]
     Route: 065
  3. LOVASTATIN [Concomitant]
     Route: 065
  4. GLUCOPHAGE [Concomitant]
     Route: 065
  5. PROZAC [Concomitant]
     Route: 065
  6. XANAX [Concomitant]
     Route: 065
  7. ESTRADIOL [Concomitant]
     Route: 065
  8. [THERAPY UNSPECIFIED] [Concomitant]
     Route: 065

REACTIONS (1)
  - CHEST PAIN [None]
